FAERS Safety Report 24848735 (Version 1)
Quarter: 2025Q1

REPORT INFORMATION
  Report Type: Report from Study
  Country: US (occurrence: US)
  Receive Date: 20250116
  Receipt Date: 20250116
  Transmission Date: 20250408
  Serious: Yes (Death, Other)
  Sender: ALEXION PHARMACEUTICALS
  Company Number: US-AstraZeneca-CH-00784302A

PATIENT

DRUGS (8)
  1. DAPAGLIFLOZIN [Suspect]
     Active Substance: DAPAGLIFLOZIN
     Indication: Product used for unknown indication
     Dosage: 5 MILLIGRAM, QD
  2. DAPAGLIFLOZIN [Suspect]
     Active Substance: DAPAGLIFLOZIN
     Dosage: 5 MILLIGRAM, QD
     Route: 048
  3. DAPAGLIFLOZIN [Suspect]
     Active Substance: DAPAGLIFLOZIN
     Dosage: 5 MILLIGRAM, QD
  4. DAPAGLIFLOZIN [Suspect]
     Active Substance: DAPAGLIFLOZIN
     Dosage: 5 MILLIGRAM, QD
     Route: 048
  5. OSIMERTINIB [Suspect]
     Active Substance: OSIMERTINIB
     Indication: Product used for unknown indication
     Dosage: 160 MILLIGRAM, QD
  6. OSIMERTINIB [Suspect]
     Active Substance: OSIMERTINIB
     Dosage: 160 MILLIGRAM, QD
     Route: 048
  7. OSIMERTINIB [Suspect]
     Active Substance: OSIMERTINIB
     Dosage: 160 MILLIGRAM, QD
  8. OSIMERTINIB [Suspect]
     Active Substance: OSIMERTINIB
     Dosage: 160 MILLIGRAM, QD
     Route: 048

REACTIONS (1)
  - Death [Fatal]
